FAERS Safety Report 12418699 (Version 4)
Quarter: 2016Q4

REPORT INFORMATION
  Report Type: Report from Study
  Country: BE (occurrence: BE)
  Receive Date: 20160531
  Receipt Date: 20161020
  Transmission Date: 20170207
  Serious: Yes (Hospitalization)
  Sender: FDA-Public Use
  Company Number: BE-ROCHE-1765416

PATIENT
  Age: 66 Year
  Sex: Male
  Weight: 88.1 kg

DRUGS (7)
  1. CISPLATIN. [Suspect]
     Active Substance: CISPLATIN
     Indication: ADENOCARCINOMA GASTRIC
     Dosage: LAST DOSE PRIOR TO SAE ON 09/MAY/2016.
     Route: 042
     Dates: start: 20151228, end: 20160509
  2. CISPLATIN. [Suspect]
     Active Substance: CISPLATIN
     Dosage: DOSE DECREASED?LAST DOSE PRIOR TO SAE ON 09/MAY/2016.
     Route: 042
     Dates: start: 20160320
  3. CAPECITABINE. [Suspect]
     Active Substance: CAPECITABINE
     Indication: ADENOCARCINOMA GASTRIC
     Dosage: LAST DOSE OF PRIOR TO SAE ON 17/MAY/2016. THERAPY DURATION -134 DAYS.
     Route: 065
     Dates: start: 20151228, end: 20160517
  4. DAFALGAN [Concomitant]
     Active Substance: ACETAMINOPHEN
     Route: 065
     Dates: start: 20151220
  5. DUROGESIC [Concomitant]
     Active Substance: FENTANYL
     Route: 065
     Dates: start: 20151221
  6. ALIZAPRIDE [Concomitant]
     Active Substance: ALIZAPRIDE
     Indication: NAUSEA
     Route: 065
     Dates: start: 20160216
  7. OXYNORM [Concomitant]
     Active Substance: OXYCODONE HYDROCHLORIDE
     Route: 065
     Dates: start: 20151221

REACTIONS (1)
  - General physical health deterioration [Recovered/Resolved]

NARRATIVE: CASE EVENT DATE: 20160517
